FAERS Safety Report 7645371-8 (Version None)
Quarter: 2011Q3

REPORT INFORMATION
  Report Type: 
  Country: None (occurrence: None)
  Receive Date: 20110729
  Receipt Date: 20110721
  Transmission Date: 20111222
  Serious: Yes (Hospitalization, Disabling, Other)
  Sender: FDA-Public Use
  Company Number: AU-PFIZER INC-2011069206

PATIENT
  Age: 36 Year
  Sex: Male

DRUGS (12)
  1. XYNTHA [Suspect]
     Dosage: UNK
     Route: 040
     Dates: start: 20100601, end: 20110301
  2. REFACTO [Suspect]
     Indication: HAEMOPHILIA
     Dosage: UNK
     Route: 040
     Dates: start: 20101001, end: 20101001
  3. XYNTHA [Suspect]
     Dosage: UNK
     Route: 040
     Dates: start: 20100601, end: 20110301
  4. GLUCOSAMINE [Concomitant]
     Indication: ARTHRALGIA
  5. XYNTHA [Suspect]
     Dosage: UNK
     Route: 040
     Dates: start: 20100601, end: 20110301
  6. XYNTHA [Suspect]
     Indication: HAEMOPHILIA
     Dosage: UNK
     Route: 040
     Dates: start: 20100601, end: 20110301
  7. XYNTHA [Suspect]
     Dosage: UNK
     Route: 040
     Dates: start: 20100601, end: 20110301
  8. XYNTHA [Suspect]
     Dosage: UNK
     Route: 040
     Dates: start: 20100601, end: 20110301
  9. XYNTHA [Suspect]
     Dosage: UNK
     Route: 040
     Dates: start: 20100601, end: 20110301
  10. XYNTHA [Suspect]
     Dosage: UNK
     Route: 040
     Dates: start: 20100601, end: 20110301
  11. XYNTHA [Suspect]
     Dosage: UNK
     Route: 040
     Dates: start: 20100601, end: 20110301
  12. XYNTHA [Suspect]
     Dosage: UNK
     Route: 040
     Dates: start: 20100601, end: 20110301

REACTIONS (2)
  - FACTOR VIII INHIBITION [None]
  - DRUG INEFFECTIVE [None]
